FAERS Safety Report 14614910 (Version 5)
Quarter: 2018Q3

REPORT INFORMATION
  Report Type: Report from Study
  Country: ES (occurrence: ES)
  Receive Date: 20180308
  Receipt Date: 20180726
  Transmission Date: 20181010
  Serious: Yes (Hospitalization, Other)
  Sender: FDA-Public Use
  Company Number: ES-PFIZER INC-2018090853

PATIENT
  Age: 3 Year
  Sex: Female
  Weight: 17.5 kg

DRUGS (18)
  1. METHYLPREDNISOLONE SODIUM SUCCINATE. [Suspect]
     Active Substance: METHYLPREDNISOLONE SODIUM SUCCINATE
     Indication: ACUTE LYMPHOCYTIC LEUKAEMIA
     Dosage: UNK
     Route: 042
     Dates: start: 20170627, end: 20170801
  2. HIDROCORTISON [Suspect]
     Active Substance: HYDROCORTISONE
     Dosage: 2 MG, DAILY
     Route: 048
     Dates: start: 20161221, end: 20170201
  3. HIDROCORTISON [Suspect]
     Active Substance: HYDROCORTISONE
     Dosage: TREATMENT
     Route: 065
  4. ONCASPAR [Suspect]
     Active Substance: PEGASPARGASE
     Dosage: 660 IU, 1X/DAY
     Route: 030
     Dates: start: 20170722, end: 20170722
  5. AMFOTERICINA B [Concomitant]
     Indication: OPPORTUNISTIC INFECTION PROPHYLAXIS
     Dosage: 24 MG, WEEKLY
     Route: 045
     Dates: start: 20170627
  6. SEPTRIN PAEDIATRIC [Concomitant]
     Active Substance: SULFAMETHOXAZOLE\TRIMETHOPRIM
     Dosage: 5 ML, 2X/DAY (EVERY 12 HOURS)
     Route: 048
     Dates: start: 20170627
  7. OMEPRAZOL /00661201/ [Concomitant]
     Active Substance: OMEPRAZOLE
     Indication: PROPHYLAXIS AGAINST GASTROINTESTINAL ULCER
     Dosage: 16 MG, 1X/DAY
     Route: 042
     Dates: start: 20170627, end: 20170801
  8. FLUCONAZOL [Concomitant]
     Active Substance: FLUCONAZOLE
     Indication: OPPORTUNISTIC INFECTION PROPHYLAXIS
     Dosage: 100 MG, 1X/DAY
     Route: 048
     Dates: start: 20170627
  9. SULFAMETOXAZOL + TRIMETOPRIMA [Concomitant]
     Active Substance: SULFAMETHOXAZOLE\TRIMETHOPRIM
     Indication: OPPORTUNISTIC INFECTION PROPHYLAXIS
     Dosage: 5 ML, UNK
     Route: 048
     Dates: start: 20170627
  10. METHOTREXATE. [Suspect]
     Active Substance: METHOTREXATE
     Indication: ACUTE LYMPHOCYTIC LEUKAEMIA
     Dosage: 10 MG, WEEKLY
     Route: 048
     Dates: start: 20170201, end: 20170409
  11. HIDROCORTISON [Suspect]
     Active Substance: HYDROCORTISONE
     Indication: ACUTE LYMPHOCYTIC LEUKAEMIA
     Dosage: 6 MG, DAILY
     Route: 048
     Dates: start: 20161221, end: 20170201
  12. ONCASPAR [Suspect]
     Active Substance: PEGASPARGASE
     Indication: ACUTE LYMPHOCYTIC LEUKAEMIA
     Dosage: 675 IU, EVERY 4 DAYS
     Route: 030
     Dates: start: 20170201, end: 20170314
  13. VINCRISTINE SULFATE. [Suspect]
     Active Substance: VINCRISTINE SULFATE
     Indication: ACUTE LYMPHOCYTIC LEUKAEMIA
     Dosage: 1 MG, WEEKLY
     Route: 042
     Dates: start: 20170718, end: 20170725
  14. SEPTRIN PAEDIATRIC [Concomitant]
     Active Substance: SULFAMETHOXAZOLE\TRIMETHOPRIM
     Indication: ANTIBIOTIC PROPHYLAXIS
     Dosage: 4.5 ML, DAILY
     Route: 048
     Dates: start: 20160704, end: 20170409
  15. ACICLOVIR [Concomitant]
     Active Substance: ACYCLOVIR
     Indication: OPPORTUNISTIC INFECTION PROPHYLAXIS
     Dosage: 2 ML, 1X/DAY
     Route: 048
     Dates: start: 20160704, end: 20170409
  16. DAUNORUBICIN HCL [Suspect]
     Active Substance: DAUNORUBICIN HYDROCHLORIDE
     Indication: ACUTE LYMPHOCYTIC LEUKAEMIA
     Dosage: 19.8 MG, WEEKLY
     Route: 042
     Dates: start: 20170718, end: 20170725
  17. MERCAPTOPURINA [Suspect]
     Active Substance: MERCAPTOPURINE
     Indication: ACUTE LYMPHOCYTIC LEUKAEMIA
     Dosage: 16 MG, DAILY
     Route: 048
     Dates: start: 20170201, end: 20170409
  18. ACICLOVIR [Concomitant]
     Active Substance: ACYCLOVIR
     Indication: ANTIVIRAL PROPHYLAXIS
     Dosage: 165 MG, 1X/DAY
     Route: 048
     Dates: start: 20170627

REACTIONS (4)
  - Febrile neutropenia [Recovered/Resolved]
  - Device related infection [Recovered/Resolved]
  - Shock [Recovered/Resolved]
  - Neutropenia [Recovered/Resolved]

NARRATIVE: CASE EVENT DATE: 20170328
